FAERS Safety Report 8869443 (Version 2)
Quarter: 2014Q2

REPORT INFORMATION
  Report Type: Spontaneous
  Country: FR (occurrence: FR)
  Receive Date: 20121028
  Receipt Date: 20131120
  Transmission Date: 20141212
  Serious: Yes (Disabling)
  Sender: FDA-Public Use
  Company Number: FR-TEVA-365582ISR

PATIENT
  Age: 71 Year
  Sex: Male

DRUGS (10)
  1. CARBOPLATIN TEVA [Suspect]
     Indication: PLEURAL MESOTHELIOMA
     Dosage: 400 MILLIGRAM DAILY;
     Route: 042
     Dates: start: 20110712, end: 20110712
  2. CARBOPLATIN TEVA [Suspect]
     Dosage: 410 MILLIGRAM DAILY;
     Route: 042
     Dates: start: 20110802, end: 20110802
  3. CISPLATIN MYLAN [Suspect]
     Dosage: 133 MILLIGRAM DAILY; 3 COURSES
     Route: 042
     Dates: start: 20110208, end: 20110322
  4. CISPLATIN MYLAN [Suspect]
     Dosage: 105 MILLIGRAM DAILY;
     Route: 042
     Dates: start: 20110401, end: 20110401
  5. ALIMTA [Suspect]
     Dosage: 875 MILLIGRAM DAILY; 2 COURSES
     Route: 042
     Dates: start: 20110208, end: 20110301
  6. ALIMTA [Suspect]
     Dosage: 850 MILLIGRAM DAILY;
     Route: 042
     Dates: start: 20110322, end: 20110322
  7. ALIMTA [Suspect]
     Dosage: 700 MILLIGRAM DAILY;
     Route: 042
     Dates: start: 20110401, end: 20110401
  8. ALIMTA [Suspect]
     Dosage: 875 MILLIGRAM DAILY; 2 COURSES
     Route: 042
     Dates: start: 20110712, end: 20110802
  9. METFORMIN (UNSPECIFIED BRANDNAME) [Concomitant]
  10. JANUVIA [Concomitant]

REACTIONS (5)
  - Renal failure [Unknown]
  - Hypoacusis [Not Recovered/Not Resolved]
  - Memory impairment [Not Recovered/Not Resolved]
  - Disturbance in attention [Not Recovered/Not Resolved]
  - Attention deficit/hyperactivity disorder [Not Recovered/Not Resolved]
